FAERS Safety Report 8854346 (Version 1)
Quarter: 2012Q4

REPORT INFORMATION
  Report Type: 
  Country: US (occurrence: US)
  Receive Date: 20121023
  Receipt Date: 20121023
  Transmission Date: 20130627
  Serious: Yes (Hospitalization)
  Sender: FDA-Public Use
  Company Number: US-PERRIGO-12US008920

PATIENT
  Sex: Female

DRUGS (9)
  1. ACETAMINOPHEN [Suspect]
     Indication: PYREXIA
     Dosage: UNK
     Route: 048
     Dates: start: 20091020, end: 20091029
  2. ACETAMINOPHEN [Suspect]
     Indication: PAIN
  3. ACETAMINOPHEN [Suspect]
     Indication: GENERAL SYMPTOM
  4. UNSPECIFIED INGREDIENT [Suspect]
     Indication: PYREXIA
     Dosage: UNK
     Route: 065
     Dates: start: 20091020, end: 20091029
  5. UNSPECIFIED INGREDIENT [Suspect]
     Indication: PAIN
  6. UNSPECIFIED INGREDIENT [Suspect]
     Indication: GENERAL SYMPTOM
  7. TYLENOL [Suspect]
     Indication: PYREXIA
     Dosage: UNK
     Route: 065
     Dates: start: 20091020, end: 20091029
  8. TYLENOL [Suspect]
     Indication: PAIN
  9. TYLENOL [Suspect]
     Indication: GENERAL SYMPTOM

REACTIONS (3)
  - Acute hepatic failure [Unknown]
  - Liver injury [Unknown]
  - Liver transplant [None]
